FAERS Safety Report 8733931 (Version 2)
Quarter: 2012Q4

REPORT INFORMATION
  Report Type: 
  Country: US (occurrence: US)
  Receive Date: 20120821
  Receipt Date: 20121204
  Transmission Date: 20130627
  Serious: No
  Sender: FDA-Public Use
  Company Number: US-PFIZER INC-2012201210

PATIENT

DRUGS (1)
  1. QUINAPRIL HCL [Suspect]
     Dosage: 5 mg daily, 1/2 tablet at a time

REACTIONS (2)
  - Feeling abnormal [Unknown]
  - Activities of daily living impaired [Unknown]
